FAERS Safety Report 13147309 (Version 3)
Quarter: 2018Q1

REPORT INFORMATION
  Report Type: Report from Study
  Country: US (occurrence: US)
  Receive Date: 20170124
  Receipt Date: 20180118
  Transmission Date: 20180508
  Serious: No
  Sender: FDA-Public Use
  Company Number: US-AMGEN-USASL2016161909

PATIENT
  Age: 75 Year
  Sex: Female

DRUGS (1)
  1. REPATHA [Suspect]
     Active Substance: EVOLOCUMAB
     Indication: HYPERLIPIDAEMIA
     Dosage: 140 MG, Q2WK
     Route: 065

REACTIONS (9)
  - Injection site pain [Unknown]
  - Pain in extremity [Unknown]
  - Injection site mass [Recovering/Resolving]
  - Back pain [Unknown]
  - Arthralgia [Unknown]
  - Injection site bruising [Unknown]
  - Hypertrichosis [Unknown]
  - Sinus disorder [Not Recovered/Not Resolved]
  - Muscle spasms [Unknown]
